FAERS Safety Report 26134437 (Version 1)
Quarter: 2025Q4

REPORT INFORMATION
  Report Type: Spontaneous
  Country: JP (occurrence: JP)
  Receive Date: 20251209
  Receipt Date: 20251209
  Transmission Date: 20260117
  Serious: Yes (Death, Hospitalization, Other)
  Sender: AMGEN
  Company Number: JP-AMGEN-JPNSP2025239260

PATIENT
  Age: 10 Year
  Sex: Female

DRUGS (1)
  1. BEVACIZUMAB [Suspect]
     Active Substance: BEVACIZUMAB
     Indication: Brain stem glioma
     Dosage: UNK
     Route: 065

REACTIONS (6)
  - Death [Fatal]
  - Hydrocephalus [Unknown]
  - Brain stem glioma [Unknown]
  - Postoperative respiratory distress [Unknown]
  - Drug effective for unapproved indication [Unknown]
  - Off label use [Unknown]
